FAERS Safety Report 11431338 (Version 1)
Quarter: 2015Q3

REPORT INFORMATION
  Report Type: Report from Study
  Country: FR (occurrence: FR)
  Receive Date: 20150828
  Receipt Date: 20150828
  Transmission Date: 20151125
  Serious: Yes (Hospitalization)
  Sender: FDA-Public Use
  Company Number: FR-ROCHE-1612482

PATIENT
  Age: 67 Year
  Sex: Female

DRUGS (4)
  1. VEMURAFENIB [Suspect]
     Active Substance: VEMURAFENIB
     Dosage: REPORTED AS ZELBORAF 100% DOSAGE
     Route: 048
     Dates: start: 20150507
  2. VEMURAFENIB [Suspect]
     Active Substance: VEMURAFENIB
     Dosage: REPORTED AS ZELBORAF 75% DOSAGE
     Route: 048
     Dates: start: 20150429
  3. COBIMETINIB [Suspect]
     Active Substance: COBIMETINIB
     Indication: MALIGNANT MELANOMA
     Route: 048
     Dates: start: 20150513
  4. VEMURAFENIB [Suspect]
     Active Substance: VEMURAFENIB
     Indication: MALIGNANT MELANOMA
     Dosage: REPORTED AS ZELBORAF 50% DOSAGE
     Route: 048
     Dates: start: 20150413

REACTIONS (2)
  - Mouth ulceration [Unknown]
  - Erythema nodosum [Unknown]

NARRATIVE: CASE EVENT DATE: 20150519
